FAERS Safety Report 25175547 (Version 2)
Quarter: 2025Q2

REPORT INFORMATION
  Report Type: Spontaneous
  Country: JP (occurrence: JP)
  Receive Date: 20250408
  Receipt Date: 20250625
  Transmission Date: 20250716
  Serious: Yes (Other)
  Sender: ALEXION PHARMACEUTICALS
  Company Number: JP-ASTRAZENECA-240108700_013120_P_1

PATIENT
  Age: 74 Year
  Weight: 59 kg

DRUGS (7)
  1. DURVALUMAB [Suspect]
     Active Substance: DURVALUMAB
     Indication: Bile duct cancer
  2. DURVALUMAB [Suspect]
     Active Substance: DURVALUMAB
     Indication: Bile duct cancer
     Dosage: 1500 MILLIGRAM, Q3W
  3. DURVALUMAB [Suspect]
     Active Substance: DURVALUMAB
     Dosage: 1500 MILLIGRAM, Q4W
  4. CISPLATIN [Suspect]
     Active Substance: CISPLATIN
     Indication: Bile duct cancer
     Route: 065
  5. GEMCITABINE HYDROCHLORIDE [Concomitant]
     Active Substance: GEMCITABINE HYDROCHLORIDE
     Indication: Bile duct cancer
     Route: 065
  6. GEMCITABINE HYDROCHLORIDE [Concomitant]
     Active Substance: GEMCITABINE HYDROCHLORIDE
     Indication: Bile duct cancer
     Route: 065
  7. GEMCITABINE HYDROCHLORIDE [Concomitant]
     Active Substance: GEMCITABINE HYDROCHLORIDE
     Route: 065

REACTIONS (11)
  - Granulocyte count decreased [Recovered/Resolved]
  - Immune-mediated nephritis [Recovering/Resolving]
  - Hyperthyroidism [Recovered/Resolved]
  - Epigastric discomfort [Recovered/Resolved]
  - Constipation [Recovered/Resolved]
  - Dizziness postural [Recovered/Resolved]
  - Ileus [Recovered/Resolved]
  - Pneumonitis [Recovered/Resolved]
  - Pancreatitis [Recovered/Resolved]
  - Cholangitis [Recovering/Resolving]
  - Pruritus [Recovered/Resolved]
